FAERS Safety Report 4446192-X (Version None)
Quarter: 2004Q3

REPORT INFORMATION
  Report Type: 
  Country: None (occurrence: None)
  Receive Date: 20040903
  Receipt Date: 20040824
  Transmission Date: 20050211
  Serious: Yes (Hospitalization)
  Sender: FDA-Public Use
  Company Number: 2004-BP-07356AU

PATIENT
  Age: 58 Year
  Sex: Male

DRUGS (6)
  1. SPIRIVA [Suspect]
     Indication: ASTHMA
     Dosage: 18 MCG (18 MCG, 18 MCG IH DAILY), IH
     Route: 055
     Dates: start: 20030714, end: 20031110
  2. SERETIDE [Concomitant]
  3. FLUTICASONE PROPIONATE [Concomitant]
  4. BUDESONIDE (BUDESONIDE TARTRATE) [Concomitant]
  5. PIMECROLIMUS (PIMECROLIMUS) [Concomitant]
  6. ANTROQUORIL CREAM [Concomitant]

REACTIONS (3)
  - FEELING ABNORMAL [None]
  - HEART RATE INCREASED [None]
  - PALPITATIONS [None]
